FAERS Safety Report 10361862 (Version 1)
Quarter: 2014Q3

REPORT INFORMATION
  Report Type: Spontaneous
  Country: JP (occurrence: JP)
  Receive Date: 20140805
  Receipt Date: 20140805
  Transmission Date: 20150326
  Serious: Yes (Other)
  Sender: FDA-Public Use
  Company Number: PHHY2009JP072045

PATIENT
  Age: 69 Year
  Sex: Male

DRUGS (3)
  1. EXJADE [Suspect]
     Active Substance: DEFERASIROX
     Indication: IRON OVERLOAD
     Dosage: 250 MG, UNK
     Dates: start: 20081201
  2. EXJADE [Suspect]
     Active Substance: DEFERASIROX
     Dosage: 500 MG, UNK
     Dates: start: 200903
  3. EXJADE [Suspect]
     Active Substance: DEFERASIROX
     Dosage: 125 UNK, UNK
     Dates: start: 200901

REACTIONS (3)
  - Pneumonia [Unknown]
  - Haemorrhage subcutaneous [Unknown]
  - Rash maculo-papular [Unknown]

NARRATIVE: CASE EVENT DATE: 20090301
